FAERS Safety Report 6263251-X (Version None)
Quarter: 2009Q3

REPORT INFORMATION
  Report Type: 
  Country: None (occurrence: None)
  Receive Date: 20090710
  Receipt Date: 20090703
  Transmission Date: 20100115
  Serious: Yes (Other)
  Sender: FDA-Public Use
  Company Number: DE-BAYER-200924862GPV

PATIENT
  Sex: Female

DRUGS (4)
  1. MOXIFLOXACIN HCL [Suspect]
     Indication: SEPSIS
     Dosage: TOTAL DAILY DOSE: 400 MG  UNIT DOSE: 400 MG
     Route: 041
     Dates: start: 20090629, end: 20090630
  2. MEROPENEM [Suspect]
     Indication: SEPSIS
     Dosage: TOTAL DAILY DOSE: 3000 MG
     Route: 041
     Dates: start: 20090629
  3. PROPOFOL [Concomitant]
     Indication: SEDATION
     Route: 041
     Dates: start: 20090629
  4. NORADRENALINE [Concomitant]
     Indication: HYPOTENSION
     Route: 065
     Dates: start: 20090630, end: 20090630

REACTIONS (1)
  - BRADYCARDIA [None]
